FAERS Safety Report 9837192 (Version 1)
Quarter: 2013Q4

REPORT INFORMATION
  Report Type: Spontaneous
  Country: US (occurrence: None)
  Receive Date: 20131205
  Receipt Date: 20131205
  Transmission Date: 20140711
  Serious: Yes (Hospitalization, Other)
  Sender: FDA-Public Use
  Company Number: 163-POMAL-13084238

PATIENT
  Age: 70 Year
  Sex: Male
  Weight: 67.13 kg

DRUGS (19)
  1. POMALYST (POMALIDOMIDE) (4 MILLIGRAM CAPSULES) [Suspect]
     Indication: PLASMA CELL MYELOMA
     Dosage: 4 MG, 21 IN 28 D, PO
     Route: 048
     Dates: start: 201306
  2. ZOVIRAX (ACICLOVIR) [Concomitant]
  3. PRADAXA (DABIGATRAN ETEXILATE MESILATE) [Concomitant]
  4. DECADRON (DEXAMETHASONE) [Concomitant]
  5. LIDEX (FLUCOCINONIDE) [Concomitant]
  6. ROBITUSSIN (GUAIFENSEIN) [Concomitant]
  7. NIZORIL (KETOCONAZOLE) [Concomitant]
  8. ATIVAN (LORAZEPAM) [Concomitant]
  9. TOPROL XL (METOPROLOL SUCCINATE) (100 MILLIGRAM) (METOPROLOL SUCCINATE) [Concomitant]
  10. THERAGRAN (THERAGARAN) [Concomitant]
  11. PROTONIX (PANTOPRAZOLE) [Concomitant]
  12. NEBUPENT (PENTAMIDINE ISETHIONATE) [Concomitant]
  13. SOMETA (ZOLEDRONIC ACID) [Concomitant]
  14. VIBRAMYCIN (DOXYCYCLINE HYCLATE) [Concomitant]
  15. LEVAQUIN (LEVOFLOXACIN) [Concomitant]
  16. PRILOSEC (OMEPRAZOLE) [Concomitant]
  17. HYDROCORTISONE (HYDROCORTISONE) [Concomitant]
  18. CITRUCEL (METHYLCELLULOSE) [Concomitant]
  19. PENTAMIDINE (PENTAMIDINE) [Concomitant]

REACTIONS (5)
  - Pneumonia [None]
  - Anaemia [None]
  - Plasma cell myeloma [None]
  - Thrombocytopenia [None]
  - No therapeutic response [None]
